FAERS Safety Report 9766300 (Version 1)
Quarter: 2013Q4

REPORT INFORMATION
  Report Type: Spontaneous
  Country: US (occurrence: US)
  Receive Date: 20131217
  Receipt Date: 20131217
  Transmission Date: 20140711
  Serious: No
  Sender: FDA-Public Use
  Company Number: US-GLAXOSMITHKLINE-A1024967A

PATIENT
  Sex: Female

DRUGS (12)
  1. VOTRIENT [Suspect]
     Indication: RENAL CELL CARCINOMA
     Dosage: 800MG PER DAY
     Route: 048
     Dates: end: 20130515
  2. PROTON PUMP INHIBITOR [Concomitant]
  3. PRISTIQ [Concomitant]
  4. ZOLOFT [Concomitant]
  5. VYVANSE [Concomitant]
  6. LOSARTAN POTASSIUM [Concomitant]
  7. AMLODIPINE [Concomitant]
  8. BYSTOLIC [Concomitant]
  9. LOVAZA [Concomitant]
  10. CALCIUM + VITAMIN D [Concomitant]
  11. FEMARA [Concomitant]
  12. CLARITIN [Concomitant]

REACTIONS (2)
  - Cough [Unknown]
  - Drug ineffective [Unknown]
